FAERS Safety Report 13792365 (Version 1)
Quarter: 2017Q3

REPORT INFORMATION
  Report Type: Report from Study
  Country: US (occurrence: US)
  Receive Date: 20170725
  Receipt Date: 20170725
  Transmission Date: 20171127
  Serious: Yes (Other)
  Sender: FDA-Public Use
  Company Number: US-JAZZ-2017-US-009463

PATIENT
  Sex: Female

DRUGS (50)
  1. XYREM [Suspect]
     Active Substance: SODIUM OXYBATE
     Dosage: DOSE ADJUSTMENT
     Route: 048
     Dates: start: 201305, end: 201505
  2. TYLENOL WITH CODEINE [Concomitant]
     Active Substance: ACETAMINOPHEN\CODEINE PHOSPHATE
  3. DIAZEPAM. [Concomitant]
     Active Substance: DIAZEPAM
  4. TRAZODONE [Concomitant]
     Active Substance: TRAZODONE HYDROCHLORIDE
  5. VITAMIN D                          /00107901/ [Concomitant]
     Active Substance: ERGOCALCIFEROL
  6. HYDROXYZINE PAM [Concomitant]
     Active Substance: HYDROXYZINE PAMOATE
  7. POLYETHYLENE GLYCOL 3350. [Concomitant]
     Active Substance: POLYETHYLENE GLYCOL 3350
  8. TOPAMAX [Concomitant]
     Active Substance: TOPIRAMATE
  9. XYREM [Suspect]
     Active Substance: SODIUM OXYBATE
     Indication: NARCOLEPSY
     Dosage: 2.25 G, BID
     Route: 048
     Dates: start: 201305, end: 201305
  10. BISACODYL. [Concomitant]
     Active Substance: BISACODYL
  11. ASPIRIN 81 [Concomitant]
     Active Substance: ASPIRIN
  12. DIMETHYL FUMARATE [Concomitant]
     Active Substance: DIMETHYL FUMARATE
  13. CRANBERRY                          /01512301/ [Concomitant]
     Active Substance: CRANBERRY
  14. MODAFINIL. [Concomitant]
     Active Substance: MODAFINIL
  15. MAGNESIUM CITRATE. [Concomitant]
     Active Substance: MAGNESIUM CITRATE
  16. TRIAMCINOLONE [Concomitant]
     Active Substance: TRIAMCINOLONE
  17. CETIRIZINE [Concomitant]
     Active Substance: CETIRIZINE HYDROCHLORIDE
  18. SYMBICORT [Concomitant]
     Active Substance: BUDESONIDE\FORMOTEROL FUMARATE DIHYDRATE
  19. DOCUSATE SODIUM. [Concomitant]
     Active Substance: DOCUSATE SODIUM
  20. TOPIRAMATE. [Concomitant]
     Active Substance: TOPIRAMATE
  21. CYANOCOBALAMIN. [Concomitant]
     Active Substance: CYANOCOBALAMIN
  22. DOXYCYCLINE MONOHYDRATE [Concomitant]
     Active Substance: DOXYCYCLINE
  23. METRONIDAZOLE. [Concomitant]
     Active Substance: METRONIDAZOLE
  24. METHENAMINE HIPPURATE. [Concomitant]
     Active Substance: METHENAMINE HIPPURATE
  25. BOTOX COSMETIC [Concomitant]
     Active Substance: ONABOTULINUMTOXINA
  26. FLUOXETINE HCL [Concomitant]
     Active Substance: FLUOXETINE HYDROCHLORIDE
  27. REBIF [Concomitant]
     Active Substance: INTERFERON BETA-1A
  28. CLOTRIMAZOLE. [Concomitant]
     Active Substance: CLOTRIMAZOLE
  29. FORADIL [Concomitant]
     Active Substance: FORMOTEROL FUMARATE
  30. LORATADINE. [Concomitant]
     Active Substance: LORATADINE
  31. NITROFURANTOIN. [Concomitant]
     Active Substance: NITROFURANTOIN
  32. TERBINAFINE HCL [Concomitant]
     Active Substance: TERBINAFINE HYDROCHLORIDE
  33. UREA. [Concomitant]
     Active Substance: UREA
  34. ONDANSETRON HCL [Concomitant]
     Active Substance: ONDANSETRON HYDROCHLORIDE
  35. PROVENTIL HFA                      /00139501/ [Concomitant]
  36. BACLOFEN. [Concomitant]
     Active Substance: BACLOFEN
  37. HYDROCORTISONE. [Concomitant]
     Active Substance: HYDROCORTISONE
  38. LOPERAMIDE [Concomitant]
     Active Substance: LOPERAMIDE
  39. VITAMIN B12 [Concomitant]
     Active Substance: CYANOCOBALAMIN
  40. XYREM [Suspect]
     Active Substance: SODIUM OXYBATE
     Dosage: 3 G, BID
     Route: 048
     Dates: start: 201512
  41. IBUPROFEN                          /00109205/ [Concomitant]
     Active Substance: IBUPROFEN
  42. OXYBUTYNIN [Concomitant]
     Active Substance: OXYBUTYNIN
  43. SENNOSIDES A+B [Concomitant]
     Active Substance: SENNOSIDES A AND B
  44. SUMATRIPTAN SUCCINATE. [Concomitant]
     Active Substance: SUMATRIPTAN SUCCINATE
  45. CARBAMAZEPINE. [Concomitant]
     Active Substance: CARBAMAZEPINE
  46. MELOXICAM. [Concomitant]
     Active Substance: MELOXICAM
  47. SARNA                              /01326901/ [Concomitant]
  48. BENZOYL PEROXIDE. [Concomitant]
     Active Substance: BENZOYL PEROXIDE
  49. CAPSAICIN. [Concomitant]
     Active Substance: CAPSAICIN
  50. TIZANIDINE HCL [Concomitant]
     Active Substance: TIZANIDINE HYDROCHLORIDE

REACTIONS (2)
  - Multiple sclerosis [Not Recovered/Not Resolved]
  - Dermatitis allergic [Not Recovered/Not Resolved]
